FAERS Safety Report 5706399-8 (Version None)
Quarter: 2008Q2

REPORT INFORMATION
  Report Type: 
  Country: None (occurrence: None)
  Receive Date: 20080415
  Receipt Date: 20080407
  Transmission Date: 20081010
  Serious: Yes (Hospitalization, Other)
  Sender: FDA-Public Use
  Company Number: US-MERCK-0804USA02129

PATIENT
  Age: 44 Year
  Sex: Male

DRUGS (7)
  1. PRINZIDE [Suspect]
     Route: 048
  2. LUNESTA [Suspect]
     Route: 065
  3. NADOLOL [Suspect]
     Route: 065
  4. NEXIUM [Concomitant]
     Route: 065
  5. NORVASC [Suspect]
     Route: 065
  6. ALLOPURINOL [Concomitant]
     Route: 065
  7. LEXAPRO [Concomitant]
     Route: 065

REACTIONS (3)
  - NEPHRITIS INTERSTITIAL [None]
  - ORAL INTAKE REDUCED [None]
  - RENAL TUBULAR NECROSIS [None]
